FAERS Safety Report 4843724-4 (Version None)
Quarter: 2005Q4

REPORT INFORMATION
  Report Type: 
  Country: None (occurrence: None)
  Receive Date: 20051202
  Receipt Date: 20051118
  Transmission Date: 20060501
  Serious: Yes (Death)
  Sender: FDA-Public Use
  Company Number: NO-AVENTIS-200514598EU

PATIENT
  Age: 65 Year
  Sex: Female

DRUGS (1)
  1. KLEXANE [Suspect]
     Indication: PROPHYLAXIS
     Route: 030
     Dates: start: 20050225, end: 20050304

REACTIONS (1)
  - PULMONARY EMBOLISM [None]
